FAERS Safety Report 7403286-4 (Version None)
Quarter: 2011Q1

REPORT INFORMATION
  Report Type: 
  Country: None (occurrence: None)
  Receive Date: 20110331
  Receipt Date: 20100331
  Transmission Date: 20110831
  Serious: Yes (Life-Threatening)
  Sender: FDA-Public Use
  Company Number: 2011MA002886

PATIENT
  Sex: Female

DRUGS (4)
  1. ACETAMINOPHEN [Concomitant]
  2. PACLITAXEL INJECTION, 6MG/ML (ATLLC) (PACLITAXEL) [Suspect]
     Indication: OVARIAN CANCER
     Dosage: 17 ML;X1;IV
     Route: 042
     Dates: start: 20100310, end: 20100310
  3. DEXAMETHASONE [Concomitant]
  4. CHLORPHENAMINE [Concomitant]

REACTIONS (4)
  - ERYTHEMA [None]
  - DYSPNOEA [None]
  - BACK PAIN [None]
  - CHEST DISCOMFORT [None]
